FAERS Safety Report 7824903-0 (Version None)
Quarter: 2011Q4

REPORT INFORMATION
  Report Type: 
  Country: None (occurrence: None)
  Receive Date: 20111019
  Receipt Date: 20110218
  Transmission Date: 20120403
  Serious: No
  Sender: FDA-Public Use
  Company Number: US-BRISTOL-MYERS SQUIBB COMPANY-15557929

PATIENT
  Age: 68 Year
  Sex: Female
  Weight: 58 kg

DRUGS (4)
  1. PHENERGAN HCL [Concomitant]
  2. XANAX [Concomitant]
     Dosage: NOT ALL THE TIME
  3. AVALIDE [Suspect]
     Dosage: 1 DF = 150/12.5MG,HAS BEEN ON AVALIDE FOR 5 YEARS
  4. THEO-DUR [Concomitant]
     Indication: ASTHMA

REACTIONS (1)
  - NAUSEA [None]
